FAERS Safety Report 5855059-1 (Version None)
Quarter: 2008Q3

REPORT INFORMATION
  Report Type: 
  Country: None (occurrence: None)
  Receive Date: 20080822
  Receipt Date: 20080603
  Transmission Date: 20090109
  Serious: No
  Sender: FDA-Public Use
  Company Number: US-ABBOTT-08P-163-0456438-00

PATIENT
  Sex: Female
  Weight: 61.29 kg

DRUGS (3)
  1. SYNTHROID [Suspect]
     Indication: THYROID DISORDER
     Route: 048
     Dates: start: 19640101
  2. ACETYLSALICYLIC ACID SRT [Concomitant]
     Indication: DRUG USE FOR UNKNOWN INDICATION
     Route: 048
  3. VITAMIN TAB [Concomitant]
     Indication: VITAMIN SUPPLEMENTATION
     Route: 048

REACTIONS (1)
  - BOWEL MOVEMENT IRREGULARITY [None]
